FAERS Safety Report 24076188 (Version 2)
Quarter: 2024Q4

REPORT INFORMATION
  Report Type: Spontaneous
  Country: US (occurrence: US)
  Receive Date: 20240710
  Receipt Date: 20241017
  Transmission Date: 20250115
  Serious: Yes (Death, Disabling)
  Sender: JOHNSON AND JOHNSON
  Company Number: US-JNJFOC-20240709404

PATIENT

DRUGS (1)
  1. CARVYKTI [Suspect]
     Active Substance: CILTACABTAGENE AUTOLEUCEL
     Indication: Product used for unknown indication
     Route: 065

REACTIONS (2)
  - Disease progression [Fatal]
  - Parkinsonism [Not Recovered/Not Resolved]
